FAERS Safety Report 5190664-X (Version None)
Quarter: 2006Q4

REPORT INFORMATION
  Report Type: 
  Country: None (occurrence: None)
  Receive Date: 20061222
  Receipt Date: 20061108
  Transmission Date: 20070319
  Serious: Yes (Hospitalization)
  Sender: FDA-Public Use
  Company Number: US-BRISTOL-MYERS SQUIBB COMPANY-13570874

PATIENT
  Age: 74 Year
  Sex: Male
  Weight: 79 kg

DRUGS (7)
  1. ORENCIA [Suspect]
     Indication: RHEUMATOID ARTHRITIS
     Route: 042
     Dates: start: 20060901
  2. PREDNISONE TAB [Concomitant]
     Route: 048
  3. NEXIUM [Concomitant]
     Route: 048
  4. TOPROL-XL [Concomitant]
  5. ZETIA [Concomitant]
  6. ZOCOR [Concomitant]
  7. FIORICET [Concomitant]

REACTIONS (1)
  - HYPERTENSION [None]
